FAERS Safety Report 5616679-2 (Version None)
Quarter: 2008Q1

REPORT INFORMATION
  Report Type: 
  Country: None (occurrence: None)
  Receive Date: 20080207
  Receipt Date: 20080205
  Transmission Date: 20080703
  Serious: Yes (Other)
  Sender: FDA-Public Use
  Company Number: PHEH2008US01028

PATIENT
  Age: 31 Year
  Sex: Female

DRUGS (7)
  1. AREDIA [Suspect]
     Indication: METASTASES TO BONE
     Dosage: UNK, UNK
     Dates: start: 20060626, end: 20070101
  2. HERCEPTIN [Concomitant]
     Dosage: EVERY 3 WEEKS
     Dates: start: 20060626
  3. FLUOROURACIL [Concomitant]
     Dates: start: 20060626
  4. EPIRUBICIN [Concomitant]
     Dates: start: 20060626
  5. CYCLOPHOSPHAMIDE [Concomitant]
     Dates: start: 20060626
  6. TAXOL [Concomitant]
  7. ZOMETA [Suspect]
     Indication: METASTASES TO BONE
     Dosage: EVERY 4 WEEKS
     Dates: start: 20070130

REACTIONS (7)
  - BONE PAIN [None]
  - FATIGUE [None]
  - LYMPHOEDEMA [None]
  - MYALGIA [None]
  - NERVE COMPRESSION [None]
  - NEUROPATHY PERIPHERAL [None]
  - SPONDYLITIS [None]
